FAERS Safety Report 10066689 (Version 2)
Quarter: 2014Q2

REPORT INFORMATION
  Report Type: Report from Study
  Country: AU (occurrence: AU)
  Receive Date: 20140408
  Receipt Date: 20140408
  Transmission Date: 20141212
  Serious: Yes (Other)
  Sender: FDA-Public Use
  Company Number: PHHY2014AU028868

PATIENT
  Age: 42 Year
  Sex: Male

DRUGS (2)
  1. CLOZARIL [Suspect]
     Dosage: 350 MG, UNK
     Dates: start: 20000727
  2. CITALOPRAM [Concomitant]
     Dosage: 20 MG, MANE
     Route: 048

REACTIONS (4)
  - Viral infection [Unknown]
  - Leukopenia [Recovered/Resolved]
  - Lymphocyte count decreased [Unknown]
  - Neutropenia [Unknown]
